FAERS Safety Report 9693316 (Version 1)
Quarter: 2013Q4

REPORT INFORMATION
  Report Type: Report from Study
  Country: GB (occurrence: GB)
  Receive Date: 20131118
  Receipt Date: 20131118
  Transmission Date: 20140711
  Serious: Yes (Death, Life-Threatening)
  Sender: FDA-Public Use
  Company Number: GB-ROCHE-1304114

PATIENT
  Sex: Male

DRUGS (4)
  1. RANIBIZUMAB [Suspect]
     Indication: AGE-RELATED MACULAR DEGENERATION
     Dosage: RECENT INJECTION OF RANIBIZUMAB ON 17/OCT/2012
     Route: 050
     Dates: start: 20120307
  2. AMLODIPINE [Concomitant]
     Route: 065
     Dates: start: 20050411
  3. AMLODIPINE [Concomitant]
     Route: 065
     Dates: start: 20130128
  4. SIMVASTATIN [Concomitant]

REACTIONS (3)
  - Rectal cancer metastatic [Fatal]
  - Rectal adenocarcinoma [Not Recovered/Not Resolved]
  - Rectal neoplasm [Not Recovered/Not Resolved]
